FAERS Safety Report 5761938-6 (Version None)
Quarter: 2008Q2

REPORT INFORMATION
  Report Type: 
  Country: None (occurrence: None)
  Receive Date: 20080603
  Receipt Date: 20080521
  Transmission Date: 20081010
  Serious: Yes (Other)
  Sender: FDA-Public Use
  Company Number: SPV1-2008-01133

PATIENT
  Age: 4 Year
  Sex: Female
  Weight: 14.5 kg

DRUGS (1)
  1. VYVANSE [Suspect]
     Indication: ATTENTION DEFICIT/HYPERACTIVITY DISORDER
     Dosage: 30 MG, 1X/DAY:QD, ORAL
     Route: 048
     Dates: start: 20080201, end: 20080515

REACTIONS (5)
  - ALOPECIA [None]
  - ANURIA [None]
  - MALNUTRITION [None]
  - OFF LABEL USE [None]
  - WEIGHT DECREASED [None]
